FAERS Safety Report 4632972-4 (Version None)
Quarter: 2005Q2

REPORT INFORMATION
  Report Type: 
  Country: None (occurrence: None)
  Receive Date: 20050412
  Receipt Date: 20050207
  Transmission Date: 20051028
  Serious: Yes (Hospitalization)
  Sender: FDA-Public Use
  Company Number: US-MERCK-0502USA00743

PATIENT
  Age: 74 Year
  Sex: Female
  Weight: 57 kg

DRUGS (30)
  1. VIOXX [Suspect]
     Indication: OSTEOARTHRITIS
     Route: 048
     Dates: start: 20000818
  2. ATENOLOL [Concomitant]
     Route: 065
     Dates: start: 20020201
  3. ASPIRIN [Concomitant]
     Route: 065
  4. RISPERDAL [Concomitant]
     Route: 065
     Dates: start: 20010501, end: 20011201
  5. RISPERDAL [Concomitant]
     Route: 065
     Dates: start: 20020201
  6. TRIAMCINOLONE [Concomitant]
     Route: 065
     Dates: start: 20020401
  7. NITROLINGUAL [Concomitant]
     Indication: CHEST PAIN
     Route: 065
     Dates: start: 20020201
  8. SYNTHROID [Concomitant]
     Route: 065
     Dates: start: 20010101
  9. SYNTHROID [Concomitant]
     Route: 065
     Dates: start: 20010201
  10. OS-CAL D [Concomitant]
     Route: 065
  11. LEVOTHROID [Concomitant]
     Route: 065
     Dates: start: 20010501
  12. GARLIC-ACTIVE [Concomitant]
     Route: 065
     Dates: start: 20010501
  13. REMERON [Concomitant]
     Route: 065
     Dates: start: 20010501
  14. REMERON [Concomitant]
     Route: 065
     Dates: start: 20010501, end: 20010501
  15. AMOXICILLIN [Concomitant]
     Route: 065
     Dates: start: 20010101
  16. AMOXICILLIN [Concomitant]
     Route: 065
     Dates: start: 20011001
  17. AMOXICILLIN [Concomitant]
     Route: 065
     Dates: start: 20030201
  18. ROBITUSSIN [Concomitant]
     Indication: COUGH
     Route: 065
     Dates: start: 20010101
  19. TYLENOL (CAPLET) [Concomitant]
     Route: 065
     Dates: start: 20000801
  20. TYLENOL (CAPLET) [Concomitant]
     Route: 065
     Dates: start: 20031101
  21. LEVOXYL [Concomitant]
     Route: 065
     Dates: start: 20020201
  22. FOSAMAX [Concomitant]
     Route: 048
     Dates: start: 20020601
  23. FOSAMAX [Concomitant]
     Route: 048
     Dates: start: 20020701
  24. LIPITOR [Concomitant]
     Route: 065
     Dates: start: 20020901
  25. NIACIN [Concomitant]
     Route: 065
     Dates: start: 20030201
  26. RITE AID THERAPEUTIC M [Concomitant]
     Route: 065
     Dates: start: 20030201
  27. LEVAQUIN [Concomitant]
     Route: 065
     Dates: start: 20030901
  28. ADVAIR DISKUS 100/50 [Concomitant]
     Route: 065
     Dates: start: 20030901
  29. ULTRAM [Concomitant]
     Indication: PAIN
     Route: 065
     Dates: start: 20031101
  30. VITAMINS (UNSPECIFIED) [Concomitant]
     Route: 065
     Dates: start: 20020601

REACTIONS (9)
  - ABDOMINAL PAIN LOWER [None]
  - ASTHENIA [None]
  - CEREBROVASCULAR ACCIDENT [None]
  - EAR PAIN [None]
  - GAIT DISTURBANCE [None]
  - OEDEMA PERIPHERAL [None]
  - PELVIC MASS [None]
  - SQUAMOUS CELL CARCINOMA OF THE CERVIX [None]
  - TENSION HEADACHE [None]
